FAERS Safety Report 11628313 (Version 1)
Quarter: 2015Q4

REPORT INFORMATION
  Report Type: Spontaneous
  Country: CZ (occurrence: CZ)
  Receive Date: 20151014
  Receipt Date: 20151014
  Transmission Date: 20160304
  Serious: Yes (Other)
  Sender: FDA-Public Use
  Company Number: CZ-MYLANLABS-2015M1034565

PATIENT

DRUGS (12)
  1. CICLOSPORIN [Suspect]
     Active Substance: CYCLOSPORINE
     Indication: PRODUCT USED FOR UNKNOWN INDICATION
     Dosage: 5MG/KG (TOTAL 300MG)
     Route: 065
     Dates: start: 200406
  2. CLODRONIC ACID [Concomitant]
     Active Substance: CLODRONIC ACID
     Dosage: 1500MG IN 28-DAY INTERVALS
     Route: 041
  3. ALFAFERONE /05982601/ [Suspect]
     Active Substance: INTERFERON ALFA-N3
     Indication: PRODUCT USED FOR UNKNOWN INDICATION
     Dosage: 3 MU THREE TIMES WEEKLY
     Route: 058
     Dates: start: 1998
  4. PAMIDRONIC ACID [Concomitant]
     Active Substance: PAMIDRONIC ACID
     Dosage: 90 MG IN 28-DAY INTERVALS
     Route: 065
  5. CLODRONIC ACID [Concomitant]
     Active Substance: CLODRONIC ACID
     Dosage: 900MG IN 14-DAY INTERVALS
     Route: 041
  6. CLADRIBINE. [Concomitant]
     Active Substance: CLADRIBINE
     Dosage: 0.1 MG/KG/DAY OVER 7 DAYS
     Route: 041
  7. THALIDOMIDE [Concomitant]
     Active Substance: THALIDOMIDE
     Route: 065
     Dates: start: 200409
  8. DEXAMETHASONE. [Suspect]
     Active Substance: DEXAMETHASONE
     Dosage: 40MG ON DAYS 1-4 AND 8-11 OF A 21-DAY CYCLE
     Route: 065
  9. DEXAMETHASONE. [Suspect]
     Active Substance: DEXAMETHASONE
     Indication: PRODUCT USED FOR UNKNOWN INDICATION
     Dosage: 40MG ON DAYS 1-4, 10-13 AND 20-23 OF A 28-DAY CYCLE
     Route: 048
  10. PREDNISONE. [Suspect]
     Active Substance: PREDNISONE
     Indication: PRODUCT USED FOR UNKNOWN INDICATION
     Dosage: 10-30 MG/DAY
     Route: 065
  11. BORTEZOMIB [Concomitant]
     Active Substance: BORTEZOMIB
     Dosage: 1.3 MG/M2 DAY 1, 4, 8, AND 11
     Route: 065
  12. ANAKINRA [Concomitant]
     Active Substance: ANAKINRA
     Dosage: DAILY
     Route: 058

REACTIONS (5)
  - Influenza like illness [Unknown]
  - Depression [Unknown]
  - Fungal skin infection [Unknown]
  - Diabetes mellitus [Unknown]
  - Fatigue [Unknown]
